FAERS Safety Report 8283488 (Version 3)
Quarter: 2012Q4

REPORT INFORMATION
  Report Type: Spontaneous
  Country: US (occurrence: None)
  Receive Date: 20111122
  Receipt Date: 20120426
  Transmission Date: 20130627
  Serious: Yes (Other)
  Sender: FDA-Public Use
  Company Number: PHHY2011US63650

PATIENT
  Age: 51 Year
  Sex: Female

DRUGS (10)
  1. GILENYA [Suspect]
     Indication: MULTIPLE SCLEROSIS RELAPSE
     Dosage: 0.5 MG, QD, ORAL, 0.5 MG, QD, ORAL
     Route: 048
     Dates: start: 20110308
  2. GILENYA [Suspect]
     Indication: MULTIPLE SCLEROSIS RELAPSE
     Dosage: 0.5 MG, QD, ORAL, 0.5 MG, QD, ORAL
     Route: 048
     Dates: start: 20110217
  3. CALCIUM CARBONATE [Concomitant]
  4. MAGNESIUM (MAGNESIUM) [Concomitant]
  5. PROVIGIL [Concomitant]
  6. VITAMIN D [Concomitant]
  7. LEXAPRO [Concomitant]
  8. ROPINIROLE [Concomitant]
  9. CIPROFLOXACIN EXTENDED-RELEASE [Concomitant]
  10. PRAMIPEXOLE (PRAMIPEXOLE) [Concomitant]

REACTIONS (10)
  - CD4 lymphocytes decreased [None]
  - Sinusitis [None]
  - Cystitis [None]
  - Central nervous system lesion [None]
  - Urine analysis abnormal [None]
  - Fatigue [None]
  - Full blood count decreased [None]
  - Urinary tract infection [None]
  - Leukopenia [None]
  - Micturition urgency [None]
